FAERS Safety Report 8153145-7 (Version None)
Quarter: 2012Q1

REPORT INFORMATION
  Report Type: 
  Country: None (occurrence: None)
  Receive Date: 20120103
  Receipt Date: 20111030
  Transmission Date: 20120608
  Serious: No
  Sender: FDA-Public Use
  Company Number: AE-2011-002901

PATIENT
  Age: 60 Year
  Sex: Male
  Weight: 86.1834 kg

DRUGS (4)
  1. INCIVEK [Suspect]
     Dosage: 2250 MG (750 MG,1 IN 8 HR),ORAL
     Route: 048
     Dates: start: 20111029
  2. HYZAAR [Concomitant]
  3. PEGASYS [Concomitant]
  4. RIBAVRIN (RIBAVIRIN) [Concomitant]

REACTIONS (2)
  - TREMOR [None]
  - CHILLS [None]
